FAERS Safety Report 4531987-4 (Version None)
Quarter: 2004Q4

REPORT INFORMATION
  Report Type: 
  Country: None (occurrence: None)
  Receive Date: 20041217
  Receipt Date: 20041206
  Transmission Date: 20050328
  Serious: Yes (Other)
  Sender: FDA-Public Use
  Company Number: MEDI-0002526

PATIENT
  Age: 3 Month
  Sex: Male
  Weight: 4.0824 kg

DRUGS (2)
  1. SYNAGIS [Suspect]
     Indication: ANTIVIRAL PROPHYLAXIS
     Dosage: 1 IN 30 D, INTRAMUSCULAR
     Route: 030
     Dates: start: 20041105, end: 20041206
  2. MULTIVITAMIN [Concomitant]

REACTIONS (3)
  - CORNEAL REFLEX DECREASED [None]
  - DYSKINESIA [None]
  - MYOCLONUS [None]
